FAERS Safety Report 7133166-3 (Version None)
Quarter: 2010Q4

REPORT INFORMATION
  Report Type: 
  Country: None (occurrence: None)
  Receive Date: 20101202
  Receipt Date: 20101123
  Transmission Date: 20110411
  Serious: Yes (Hospitalization)
  Sender: FDA-Public Use
  Company Number: Z0006281A

PATIENT
  Sex: Female
  Weight: 59 kg

DRUGS (3)
  1. PLACEBO [Suspect]
     Indication: RHEUMATOID ARTHRITIS
     Route: 042
     Dates: start: 20090112, end: 20090128
  2. OFATUMUMAB [Suspect]
     Indication: RHEUMATOID ARTHRITIS
     Route: 042
     Dates: start: 20090701
  3. METHOTREXATE [Suspect]
     Dosage: 15MG WEEKLY
     Route: 042

REACTIONS (3)
  - ESCHERICHIA BACTERAEMIA [None]
  - HERPES OESOPHAGITIS [None]
  - OESOPHAGEAL CANDIDIASIS [None]
